FAERS Safety Report 9101252 (Version 3)
Quarter: 2013Q1

REPORT INFORMATION
  Report Type: Report from Study
  Country: NL (occurrence: NL)
  Receive Date: 20130218
  Receipt Date: 20130325
  Transmission Date: 20140127
  Serious: Yes (Life-Threatening, Hospitalization, Other)
  Sender: FDA-Public Use
  Company Number: NL-BAYER-2012-100082

PATIENT
  Age: 60 Year
  Sex: Female

DRUGS (10)
  1. SORAFENIB (RAF KINASE INHIBITOR) [Suspect]
     Indication: NON-SMALL CELL LUNG CANCER
     Dosage: UNK
     Dates: start: 20120910
  2. SORAFENIB (RAF KINASE INHIBITOR) [Suspect]
     Indication: NON-SMALL CELL LUNG CANCER
     Dosage: UNK
     Dates: start: 20120924
  3. SORAFENIB (RAF KINASE INHIBITOR) [Suspect]
     Indication: NON-SMALL CELL LUNG CANCER
     Dosage: UNK
     Dates: start: 20121015
  4. SORAFENIB (RAF KINASE INHIBITOR) [Suspect]
     Indication: NON-SMALL CELL LUNG CANCER
  5. GEMCITABINE [Suspect]
     Indication: NON-SMALL CELL LUNG CANCER
     Dosage: 1500 MG/M2, UNK
  6. CARBOPLATIN [Suspect]
     Indication: NON-SMALL CELL LUNG CANCER
     Dosage: UNK
     Dates: start: 20120910
  7. OXYCODON [Concomitant]
     Dosage: 90 MG DAILY
     Dates: start: 20130310
  8. PREGABALIN [Concomitant]
     Dosage: 150 MG DAILY
     Dates: start: 20130313
  9. PCM [Concomitant]
     Dosage: 3000 MG DAILY
     Dates: start: 20130313
  10. FUROSEMIDE [Concomitant]
     Dosage: 20 MG DAILY
     Dates: start: 20130313

REACTIONS (17)
  - Thrombocytopenia [Recovered/Resolved]
  - White blood cell disorder [None]
  - Anaemia [None]
  - Rash [None]
  - Decubitus ulcer [None]
  - Dyspnoea [None]
  - Diarrhoea [None]
  - Hepatic enzyme increased [None]
  - Back pain [None]
  - Wound [Recovering/Resolving]
  - Aspartate aminotransferase increased [None]
  - Dyspnoea [None]
  - Fall [None]
  - Musculoskeletal chest pain [None]
  - Skin wound [None]
  - Neutrophil count abnormal [None]
  - Alanine aminotransferase increased [None]
